FAERS Safety Report 5847019-1 (Version None)
Quarter: 2008Q3

REPORT INFORMATION
  Report Type: 
  Country: None (occurrence: None)
  Receive Date: 20080815
  Receipt Date: 20080807
  Transmission Date: 20090109
  Serious: Yes (Life-Threatening, Other)
  Sender: FDA-Public Use
  Company Number: AU-PURDUE-DEU_2008_0004557

PATIENT
  Age: 43 Year
  Sex: Female

DRUGS (5)
  1. MORPHINE SULFATE [Suspect]
     Indication: PROCEDURAL PAIN
     Dosage: UNK, SEE TEXT
     Route: 065
  2. OXYGESIC [Suspect]
     Indication: PROCEDURAL PAIN
     Dosage: UNK, SEE TEXT
     Route: 048
  3. TRAMADOL HCL INJECTABLE [Suspect]
     Indication: PROCEDURAL PAIN
     Dosage: UNK, SEE TEXT
     Route: 065
  4. KETOROLAC TROMETHAMINE [Concomitant]
  5. FENTANYL-25 [Concomitant]

REACTIONS (6)
  - CYANOSIS [None]
  - MIOSIS [None]
  - MULTIPLE DRUG OVERDOSE [None]
  - OBSTRUCTIVE AIRWAYS DISORDER [None]
  - RESPIRATORY FAILURE [None]
  - UNRESPONSIVE TO STIMULI [None]
